FAERS Safety Report 22146316 (Version 1)
Quarter: 2023Q1

REPORT INFORMATION
  Report Type: Spontaneous
  Country: US (occurrence: None)
  Receive Date: 20230327
  Receipt Date: 20230327
  Transmission Date: 20230418
  Serious: Yes (Other)
  Sender: FDA-Public Use
  Company Number: None

PATIENT
  Age: 56 Year
  Sex: Female
  Weight: 81 kg

DRUGS (11)
  1. NIACIN [Suspect]
     Active Substance: NIACIN
     Indication: Blood cholesterol increased
     Dosage: OTHER QUANTITY : 1 TABLET(S);?FREQUENCY : DAILY;?
     Route: 048
     Dates: start: 20230325, end: 20230327
  2. LEVOTHYROXINE [Concomitant]
     Active Substance: LEVOTHYROXINE
  3. PRILOSEC [Concomitant]
     Active Substance: OMEPRAZOLE MAGNESIUM
  4. ZYRTEC [Concomitant]
     Active Substance: CETIRIZINE HYDROCHLORIDE
  5. VITAMINS [Concomitant]
     Active Substance: VITAMINS
  6. TURMERIC W/CIRCUMIN [Concomitant]
  7. TART CHERRY JUICE EXTRACT [Concomitant]
  8. FISH OIL [Concomitant]
  9. PROBIOTICS NOS [Concomitant]
     Active Substance: PROBIOTICS NOS
  10. CALCIUM [Concomitant]
  11. COLLAGEN [Concomitant]
     Active Substance: COLLAGEN

REACTIONS (9)
  - Headache [None]
  - Urticaria [None]
  - Swelling face [None]
  - Generalised oedema [None]
  - Arthralgia [None]
  - Meniscus injury [None]
  - Pain [None]
  - Rash erythematous [None]
  - Flushing [None]

NARRATIVE: CASE EVENT DATE: 20230326
